FAERS Safety Report 4599168-6 (Version None)
Quarter: 2005Q1

REPORT INFORMATION
  Report Type: 
  Country: None (occurrence: None)
  Receive Date: 20050207
  Receipt Date: 20041102
  Transmission Date: 20050727
  Serious: No
  Sender: FDA-Public Use
  Company Number: 2004USFACT00109

PATIENT
  Age: 44 Year
  Sex: Female
  Weight: 68 kg

DRUGS (4)
  1. FACTIVE [Suspect]
     Indication: RESPIRATORY TRACT INFECTION BACTERIAL
     Dosage: 320.00 MG, QD, ORAL
     Route: 048
     Dates: start: 20041018, end: 20041024
  2. CLARINEX [Concomitant]
  3. NASONEX [Concomitant]
  4. P-V-TUSSIN SYRUP (AMMONIUM CHLORIDE, CHLORPHENAMINE MALEATE, MEPYRAMIN [Concomitant]

REACTIONS (1)
  - RASH GENERALISED [None]
